FAERS Safety Report 8792106 (Version 1)
Quarter: 2012Q4

REPORT INFORMATION
  Report Type: 
  Country: US (occurrence: US)
  Receive Date: 20120918
  Receipt Date: 20120918
  Transmission Date: 20130627
  Serious: No
  Sender: FDA-Public Use
  Company Number: US-B.I. PHARMACEUTICALS,INC./RIDGEFIELD-2012-BP-22623BP

PATIENT
  Age: 94 Year

DRUGS (1)
  1. PRADAXA [Suspect]

REACTIONS (1)
  - Faeces discoloured [Unknown]
